FAERS Safety Report 20584399 (Version 1)
Quarter: 2022Q1

REPORT INFORMATION
  Report Type: Spontaneous
  Country: DE (occurrence: DE)
  Receive Date: 20220311
  Receipt Date: 20220311
  Transmission Date: 20220423
  Serious: Yes (Hospitalization, Other)
  Sender: FDA-Public Use
  Company Number: DE-AstraZeneca-2022A080149

PATIENT
  Sex: Female

DRUGS (6)
  1. HUMAN IMMUNOGLOBULIN G [Suspect]
     Active Substance: HUMAN IMMUNOGLOBULIN G
     Indication: Second primary malignancy
     Route: 041
  2. VAXZEVRIA [Suspect]
     Active Substance: AZD-1222
     Dosage: UNK
     Route: 030
     Dates: start: 20220212
  3. PFIZER-BIONTECH COVID-19 VACCINE [Suspect]
     Active Substance: TOZINAMERAN
     Indication: Vaccination failure
     Dates: start: 20210511
  4. PFIZER-BIONTECH COVID-19 VACCINE [Suspect]
     Active Substance: TOZINAMERAN
     Indication: Vaccination failure
     Dosage: UNK
     Dates: start: 20220112
  5. CORTISONE [Suspect]
     Active Substance: CORTISONE
     Indication: Wrong product administered
  6. IOMEPROL [Suspect]
     Active Substance: IOMEPROL
     Indication: Lung neoplasm malignant

REACTIONS (10)
  - Hypersomnia [Recovered/Resolved]
  - Near death experience [Recovered/Resolved]
  - Petechiae [Unknown]
  - Thrombocytopenia [Unknown]
  - Influenza like illness [Recovered/Resolved]
  - Malaise [Recovered/Resolved]
  - Headache [Recovered/Resolved]
  - Platelet disorder [Unknown]
  - General physical health deterioration [Unknown]
  - Cushing^s syndrome [Not Recovered/Not Resolved]

NARRATIVE: CASE EVENT DATE: 20210213
